FAERS Safety Report 9578457 (Version 1)
Quarter: 2013Q4

REPORT INFORMATION
  Report Type: Spontaneous
  Country: US (occurrence: US)
  Receive Date: 20131001
  Receipt Date: 20131001
  Transmission Date: 20140711
  Serious: No
  Sender: FDA-Public Use
  Company Number: US-AMGEN-USASP2013012837

PATIENT
  Sex: Male
  Weight: 108.84 kg

DRUGS (9)
  1. CELEBREX [Concomitant]
     Dosage: 100 MG, UNK
  2. FOLIC ACID [Concomitant]
     Dosage: 20 MG, UNK
  3. DOXAZOSIN [Concomitant]
     Dosage: 8 MG, UNK
  4. DIOVAN [Concomitant]
     Dosage: 160 MG, UNK
  5. TAMSULOSIN [Concomitant]
     Dosage: 0.4 MG, UNK
  6. AVODART [Concomitant]
     Dosage: 0.5 MG, UNK
  7. PREDNISONE [Concomitant]
     Dosage: 1 MG, UNK
  8. METHOTREXATE [Concomitant]
     Dosage: 2.5 MG, UNK
  9. ENBREL [Suspect]
     Indication: RHEUMATOID ARTHRITIS
     Dosage: 50 MG, QWK
     Route: 058

REACTIONS (2)
  - Pyrexia [Unknown]
  - Sinus congestion [Unknown]
